FAERS Safety Report 4659023-X (Version None)
Quarter: 2005Q2

REPORT INFORMATION
  Report Type: 
  Country: None (occurrence: None)
  Receive Date: 20050511
  Receipt Date: 20050429
  Transmission Date: 20051028
  Serious: Yes (Hospitalization)
  Sender: FDA-Public Use
  Company Number: FR-GLAXOSMITHKLINE-B0379596A

PATIENT
  Age: 44 Year
  Sex: Male
  Weight: 60 kg

DRUGS (4)
  1. TRIZIVIR [Suspect]
     Dosage: 1TAB TWICE PER DAY
     Route: 048
     Dates: start: 20011001, end: 20050129
  2. PEGASYS [Suspect]
     Indication: HEPATITIS C
     Route: 058
     Dates: start: 20040518, end: 20050129
  3. COPEGUS [Suspect]
     Indication: HEPATITIS C
     Dosage: 3TABS PER DAY
     Route: 048
     Dates: start: 20040518, end: 20050129
  4. METHADONE HCL [Concomitant]
     Route: 048

REACTIONS (7)
  - ANAEMIA [None]
  - CYTOLYTIC HEPATITIS [None]
  - HYPERAMYLASAEMIA [None]
  - LACTIC ACIDOSIS [None]
  - RENAL FAILURE [None]
  - RESPIRATORY ACIDOSIS [None]
  - RHABDOMYOLYSIS [None]
